FAERS Safety Report 5216633-9 (Version None)
Quarter: 2007Q1

REPORT INFORMATION
  Report Type: 
  Country: None (occurrence: None)
  Receive Date: 20061130
  Receipt Date: 20060807
  Transmission Date: 20070707
  Serious: Yes (Other)
  Sender: FDA-Public Use
  Company Number: US200608002076

PATIENT
  Sex: Male
  Weight: 85.1 kg

DRUGS (1)
  1. ZYPREXA [Suspect]
     Dosage: SEE IMAGE

REACTIONS (5)
  - DIABETES MELLITUS [None]
  - DIABETIC KETOACIDOSIS [None]
  - GENERAL PHYSICAL HEALTH DETERIORATION [None]
  - NEUROPATHY [None]
  - STRESS [None]
